FAERS Safety Report 15153438 (Version 1)
Quarter: 2018Q3

REPORT INFORMATION
  Report Type: Spontaneous
  Country: US (occurrence: US)
  Receive Date: 20180717
  Receipt Date: 20180717
  Transmission Date: 20181010
  Serious: No
  Sender: FDA-Public Use
  Company Number: US-SHIRE-US201825824

PATIENT
  Age: 81 Year
  Sex: Female

DRUGS (2)
  1. PENTASA [Suspect]
     Active Substance: MESALAMINE
     Indication: CROHN^S DISEASE
  2. PENTASA [Suspect]
     Active Substance: MESALAMINE
     Indication: COLITIS ULCERATIVE
     Dosage: 2000 MG, 2X/DAY:BID
     Route: 065
     Dates: start: 201705

REACTIONS (4)
  - Arthritis [Unknown]
  - Joint range of motion decreased [Unknown]
  - Alopecia [Unknown]
  - Acne [Unknown]
